FAERS Safety Report 25233448 (Version 2)
Quarter: 2025Q3

REPORT INFORMATION
  Report Type: Spontaneous
  Country: US (occurrence: US)
  Receive Date: 20250424
  Receipt Date: 20250804
  Transmission Date: 20251021
  Serious: Yes (Hospitalization)
  Sender: JOHNSON AND JOHNSON
  Company Number: US-JNJFOC-20250424505

PATIENT
  Age: 65 Year
  Sex: Male

DRUGS (3)
  1. TECVAYLI [Suspect]
     Active Substance: TECLISTAMAB-CQYV
     Indication: Cryoglobulinaemia
     Dosage: CYCLE 3
     Route: 065
     Dates: start: 20240329
  2. TECVAYLI [Suspect]
     Active Substance: TECLISTAMAB-CQYV
     Dosage: CYCLE 6
     Route: 065
  3. TECVAYLI [Suspect]
     Active Substance: TECLISTAMAB-CQYV
     Route: 065
     Dates: start: 20231129

REACTIONS (3)
  - Pneumonia necrotising [Unknown]
  - Cellulitis staphylococcal [Unknown]
  - Drug effective for unapproved indication [Unknown]
